FAERS Safety Report 8459756-3 (Version None)
Quarter: 2012Q2

REPORT INFORMATION
  Report Type: 
  Country: None (occurrence: None)
  Receive Date: 20120622
  Receipt Date: 20120619
  Transmission Date: 20120825
  Serious: Yes (Death, Life-Threatening, Disabling)
  Sender: FDA-Public Use
  Company Number: GB-MERCK-0903GBR00053

PATIENT
  Age: 70 Year
  Sex: Male

DRUGS (23)
  1. FUSIDATE SODIUM [Concomitant]
     Indication: MUSCLE ABSCESS
     Route: 048
     Dates: start: 20081113, end: 20081216
  2. LACTULOSE [Concomitant]
     Route: 065
  3. LISINOPRIL [Concomitant]
     Route: 065
  4. ASPIRIN [Concomitant]
     Route: 065
  5. FLOXACILLIN [Concomitant]
     Route: 065
  6. SENNA [Concomitant]
     Route: 065
  7. CLARITHROMYCIN [Concomitant]
     Indication: LOWER RESPIRATORY TRACT INFECTION
     Route: 048
     Dates: start: 20081208, end: 20081209
  8. ERYTHROMYCIN [Concomitant]
     Indication: LOWER RESPIRATORY TRACT INFECTION
     Route: 048
     Dates: start: 20081204, end: 20081208
  9. AMITRIPTYLINE HYDROCHLORIDE [Concomitant]
     Route: 065
  10. GLUCOSAMINE [Concomitant]
     Route: 065
  11. TRAMADOL HYDROCHLORIDE [Concomitant]
     Route: 065
  12. ZOCOR [Suspect]
     Indication: MYOCARDIAL ISCHAEMIA
     Route: 048
     Dates: start: 20050101, end: 20081209
  13. FUSIDATE SODIUM [Concomitant]
     Indication: INTERVERTEBRAL DISCITIS
     Route: 048
     Dates: start: 20081113, end: 20081216
  14. POLYETHYLENE GLYCOL 3350 AND POTASSIUM CHLORIDE AND SODIUM BICARBONATE [Concomitant]
     Route: 065
  15. LATANOPROST [Concomitant]
     Route: 065
  16. DICLOFENAC [Concomitant]
     Route: 065
  17. GABAPENTIN [Concomitant]
     Route: 065
  18. MAGNESIUM HYDROXIDE [Concomitant]
     Route: 065
  19. TIOTROPIUM BROMIDE [Concomitant]
     Route: 065
  20. ZOCOR [Suspect]
     Indication: HYPERCHOLESTEROLAEMIA
     Route: 048
     Dates: start: 20050101, end: 20081209
  21. COSOPT [Concomitant]
     Route: 047
  22. FENTANYL [Concomitant]
     Route: 065
  23. ACETAMINOPHEN [Concomitant]
     Route: 065

REACTIONS (4)
  - RENAL FAILURE ACUTE [None]
  - MUSCULAR WEAKNESS [None]
  - RHABDOMYOLYSIS [None]
  - RESPIRATORY DISORDER [None]
